FAERS Safety Report 5756359-6 (Version None)
Quarter: 2008Q2

REPORT INFORMATION
  Report Type: 
  Country: None (occurrence: None)
  Receive Date: 20080528
  Receipt Date: 20080528
  Transmission Date: 20081010
  Serious: Yes (Other)
  Sender: FDA-Public Use
  Company Number: None

PATIENT
  Age: 87 Year
  Sex: Female
  Weight: 52.1637 kg

DRUGS (1)
  1. TYLENOL (CAPLET) [Suspect]
     Indication: ARTHRALGIA
     Dosage: 1  1X DAY PO
     Route: 048
     Dates: start: 20060101, end: 20080526

REACTIONS (3)
  - DYSPNOEA [None]
  - HYPERSENSITIVITY [None]
  - URTICARIA [None]
